FAERS Safety Report 8862694 (Version 1)
Quarter: 2012Q4

REPORT INFORMATION
  Report Type: Report from Study
  Country: US (occurrence: US)
  Receive Date: 20121026
  Receipt Date: 20121026
  Transmission Date: 20130627
  Serious: Yes (Other)
  Sender: FDA-Public Use
  Company Number: US-US-EMD SERONO, INC.-7170106

PATIENT

DRUGS (1)
  1. REBIF [Suspect]
     Route: 064

REACTIONS (2)
  - Trisomy 21 [Not Recovered/Not Resolved]
  - Foetal exposure during pregnancy [Unknown]
